FAERS Safety Report 25192575 (Version 1)
Quarter: 2025Q2

REPORT INFORMATION
  Report Type: Other
  Country: CN (occurrence: CN)
  Receive Date: 20250414
  Receipt Date: 20250414
  Transmission Date: 20250717
  Serious: Yes (Other)
  Sender: LYNE LABORATORIES
  Company Number: CN-Lyne Laboratories Inc.-2174837

PATIENT
  Age: 3 Year
  Sex: Female

DRUGS (14)
  1. DEXAMETHASONE [Suspect]
     Active Substance: DEXAMETHASONE
     Indication: B-cell type acute leukaemia
  2. CYTARABINE [Suspect]
     Active Substance: CYTARABINE
  3. IMIPENEM [Concomitant]
     Active Substance: IMIPENEM
  4. GANCICLOVIR [Concomitant]
     Active Substance: GANCICLOVIR
  5. FLUCONAZOLE [Concomitant]
     Active Substance: FLUCONAZOLE
  6. CASPOFUNGIN ACETATE [Concomitant]
     Active Substance: CASPOFUNGIN ACETATE
  7. COTRIMOXAZOLE [Concomitant]
     Active Substance: SULFAMETHOXAZOLE\TRIMETHOPRIM
  8. TIGECYCLINE [Concomitant]
     Active Substance: TIGECYCLINE
  9. MEROPENEM [Concomitant]
     Active Substance: MEROPENEM
  10. VANCOMYCIN HYDROCHLORIDE [Concomitant]
     Active Substance: VANCOMYCIN HYDROCHLORIDE
  11. METHOTREXATE [Suspect]
     Active Substance: METHOTREXATE
  12. ASPARAGINASE [Suspect]
     Active Substance: ASPARAGINASE
  13. DAUNORUBICIN HYDROCHLORIDE [Suspect]
     Active Substance: DAUNORUBICIN HYDROCHLORIDE
  14. VINCRISTINE SULFATE [Suspect]
     Active Substance: VINCRISTINE SULFATE

REACTIONS (1)
  - Haemophagocytic lymphohistiocytosis [Recovered/Resolved]
